FAERS Safety Report 5103752-0 (Version None)
Quarter: 2006Q3

REPORT INFORMATION
  Report Type: 
  Country: None (occurrence: None)
  Receive Date: 20060913
  Receipt Date: 20060802
  Transmission Date: 20061208
  Serious: Yes (Life-Threatening)
  Sender: FDA-Public Use
  Company Number: 2006AP03610

PATIENT
  Age: 27217 Day
  Sex: Male
  Weight: 55 kg

DRUGS (5)
  1. CARBOCAIN AMPOULE [Suspect]
     Indication: ANAESTHESIA
     Route: 065
     Dates: start: 20060728, end: 20060728
  2. ANAPEINE [Suspect]
     Indication: ANAESTHESIA
     Route: 053
     Dates: start: 20060728, end: 20060728
  3. MARCAINE [Concomitant]
     Indication: SPINAL ANAESTHESIA
     Dates: start: 20060728, end: 20060728
  4. CALSLOT [Concomitant]
     Indication: HYPERTENSION
     Route: 048
  5. NU-LOTAN [Concomitant]
     Indication: HYPERTENSION
     Route: 048

REACTIONS (5)
  - BLOOD PRESSURE DECREASED [None]
  - BRADYCARDIA [None]
  - CONVULSION [None]
  - DEPRESSED LEVEL OF CONSCIOUSNESS [None]
  - DRUG TOXICITY [None]
